FAERS Safety Report 11837831 (Version 2)
Quarter: 2015Q4

REPORT INFORMATION
  Report Type: Spontaneous
  Country: US (occurrence: US)
  Receive Date: 20151215
  Receipt Date: 20151222
  Transmission Date: 20160305
  Serious: No
  Sender: FDA-Public Use
  Company Number: US-PFIZER INC-2015426506

PATIENT
  Age: 49 Year
  Sex: Male
  Weight: 104 kg

DRUGS (1)
  1. VIAGRA [Suspect]
     Active Substance: SILDENAFIL CITRATE
     Indication: SEXUAL DYSFUNCTION
     Dosage: 1 DF, 2X/DAY; PILL TWICE A DAY
     Dates: start: 201511

REACTIONS (3)
  - Erection increased [Unknown]
  - Semen volume increased [Recovered/Resolved]
  - Product use issue [Unknown]

NARRATIVE: CASE EVENT DATE: 20151125
